FAERS Safety Report 15043584 (Version 2)
Quarter: 2018Q2

REPORT INFORMATION
  Report Type: Spontaneous
  Country: US (occurrence: US)
  Receive Date: 20180621
  Receipt Date: 20180625
  Transmission Date: 20180711
  Serious: Yes (Other)
  Sender: FDA-Public Use
  Company Number: US-PFIZER INC-2018246743

PATIENT
  Age: 93 Year
  Sex: Female

DRUGS (3)
  1. NIZATIDINE. [Suspect]
     Active Substance: NIZATIDINE
     Indication: DYSPEPSIA
     Dosage: 300 MG, DAILY
  2. LEVOTHYROXINE. [Concomitant]
     Active Substance: LEVOTHYROXINE
     Dosage: 50 UG, DAILY
  3. ENALAPRIL [Concomitant]
     Active Substance: ENALAPRIL
     Dosage: 25 MG, DAILY

REACTIONS (6)
  - Delusion [Recovered/Resolved]
  - Agitation [Recovered/Resolved]
  - Confusional state [Recovered/Resolved]
  - Delirium [Recovered/Resolved]
  - Hallucination, visual [Recovered/Resolved]
  - Hallucination, tactile [Recovered/Resolved]
